FAERS Safety Report 23443586 (Version 2)
Quarter: 2024Q1

REPORT INFORMATION
  Report Type: Spontaneous
  Country: US (occurrence: US)
  Receive Date: 20240125
  Receipt Date: 20240212
  Transmission Date: 20240410
  Serious: No
  Sender: FDA-Public Use
  Company Number: US-PFIZER INC-202400022421

PATIENT
  Age: 73 Year
  Sex: Female
  Weight: 57.61 kg

DRUGS (2)
  1. PREMARIN [Suspect]
     Active Substance: ESTROGENS, CONJUGATED
     Indication: Hot flush
     Dosage: 0.3 MG, 1X/DAY
     Route: 048
  2. PREMARIN [Suspect]
     Active Substance: ESTROGENS, CONJUGATED
     Indication: Bone density abnormal

REACTIONS (1)
  - Menstrual disorder [Unknown]
